FAERS Safety Report 16815996 (Version 1)
Quarter: 2019Q3

REPORT INFORMATION
  Report Type: Spontaneous
  Country: US (occurrence: US)
  Receive Date: 20190725
  Receipt Date: 20190725
  Transmission Date: 20191005
  Serious: Yes (Hospitalization)
  Sender: FDA-Public Use
  Company Number: None

PATIENT
  Age: 43 Year
  Sex: Male

DRUGS (1)
  1. VENLAFAXINE [Suspect]
     Active Substance: VENLAFAXINE HYDROCHLORIDE
     Indication: DEPRESSION
     Dates: start: 20190625, end: 20190627

REACTIONS (10)
  - Hyperhidrosis [None]
  - Confusional state [None]
  - Dysarthria [None]
  - Dizziness [None]
  - Transient ischaemic attack [None]
  - Hypertension [None]
  - Paraesthesia [None]
  - Seizure [None]
  - Serotonin syndrome [None]
  - Sedation [None]

NARRATIVE: CASE EVENT DATE: 20190627
